FAERS Safety Report 9799151 (Version 1)
Quarter: 2014Q1

REPORT INFORMATION
  Report Type: Spontaneous
  Country: US (occurrence: US)
  Receive Date: 20140106
  Receipt Date: 20140106
  Transmission Date: 20141002
  Serious: No
  Sender: FDA-Public Use
  Company Number: US-GILEAD-2010-0034013

PATIENT
  Age: 43 Year
  Sex: Female

DRUGS (7)
  1. LETAIRIS [Suspect]
     Indication: PULMONARY ARTERIAL HYPERTENSION
     Route: 048
     Dates: start: 20100506, end: 201008
  2. SILDENAFIL [Concomitant]
  3. WARFARIN [Concomitant]
  4. ZOFRAN [Concomitant]
  5. ACETAMINOPHEN [Concomitant]
  6. DIFLUCAN [Concomitant]
  7. AMBIEN [Concomitant]

REACTIONS (2)
  - Nausea [Unknown]
  - Vomiting [Unknown]
